FAERS Safety Report 5153365-X (Version None)
Quarter: 2006Q4

REPORT INFORMATION
  Report Type: 
  Country: None (occurrence: None)
  Receive Date: 20061117
  Receipt Date: 20061108
  Transmission Date: 20070319
  Serious: Yes (Other)
  Sender: FDA-Public Use
  Company Number: US-NOVOPROD-258436

PATIENT
  Sex: Female

DRUGS (5)
  1. ACTIVELLA [Suspect]
     Indication: MENOPAUSAL SYMPTOMS
     Dosage: UNKNOWN
     Route: 048
  2. PREMARIN [Suspect]
     Indication: MENOPAUSAL SYMPTOMS
     Dosage: UNKNOWN
  3. PROVERA [Suspect]
     Indication: MENOPAUSAL SYMPTOMS
     Dosage: UNKNOWN
  4. PREMPRO [Suspect]
     Indication: MENOPAUSAL SYMPTOMS
     Dosage: UNKNOWN
  5. MPA [Suspect]
     Indication: MENOPAUSAL SYMPTOMS
     Dosage: UNKNOWN

REACTIONS (2)
  - BREAST CANCER [None]
  - BREAST CANCER FEMALE [None]
